FAERS Safety Report 23942137 (Version 1)
Quarter: 2024Q2

REPORT INFORMATION
  Report Type: Spontaneous
  Country: US (occurrence: US)
  Receive Date: 20240605
  Receipt Date: 20240605
  Transmission Date: 20240715
  Serious: Yes (Hospitalization, Other)
  Sender: FDA-Public Use
  Company Number: US-SA-SAC20240531001314

PATIENT
  Age: 74 Year
  Sex: Female

DRUGS (2)
  1. KEVZARA [Suspect]
     Active Substance: SARILUMAB
     Indication: Rheumatoid arthritis
     Dosage: 200 MG, QOW
     Route: 058
  2. LINEZOLID [Suspect]
     Active Substance: LINEZOLID
     Indication: Abscess limb
     Dosage: UNK
     Route: 065

REACTIONS (9)
  - Abscess limb [Unknown]
  - Rheumatoid arthritis [Unknown]
  - Symptom recurrence [Unknown]
  - Inflammation [Unknown]
  - Pain [Unknown]
  - Diarrhoea [Unknown]
  - Nausea [Unknown]
  - Vomiting [Unknown]
  - Inappropriate schedule of product administration [Unknown]

NARRATIVE: CASE EVENT DATE: 20240501
